FAERS Safety Report 17945206 (Version 2)
Quarter: 2020Q4

REPORT INFORMATION
  Report Type: Spontaneous
  Country: JP (occurrence: JP)
  Receive Date: 20200626
  Receipt Date: 20201204
  Transmission Date: 20210113
  Serious: Yes (Other)
  Sender: FDA-Public Use
  Company Number: JP-TEVA-2020-JP-004195J

PATIENT
  Age: 70 Year
  Sex: Male
  Weight: 55 kg

DRUGS (16)
  1. S-1TAIHO OD [Suspect]
     Active Substance: GIMERACIL\OTERACIL\TEGAFUR
     Indication: GASTRIC CANCER
     Route: 048
     Dates: start: 20200213, end: 20200217
  2. AMLODIPINE [Concomitant]
     Active Substance: AMLODIPINE BESYLATE
     Dosage: 5 MILLIGRAM DAILY;
     Route: 048
  3. LEVOFLOXACIN. [Concomitant]
     Active Substance: LEVOFLOXACIN
     Indication: CONJUNCTIVAL HYPERAEMIA
     Route: 065
     Dates: start: 20200422, end: 20200629
  4. MINODRONIC ACID HYDRATE [Concomitant]
     Active Substance: MINODRONIC ACID
     Dosage: 50 MILLIGRAM DAILY;
     Route: 048
  5. CALFINA [Concomitant]
     Dosage: 1 MICROGRAM DAILY;
     Route: 048
  6. EPINASTINE HYDROCHLORIDE. [Concomitant]
     Active Substance: EPINASTINE HYDROCHLORIDE
     Indication: RHINITIS
     Dosage: 20 MILLIGRAM DAILY;
     Route: 048
     Dates: start: 20200409, end: 20200708
  7. FLUOROMETHOLONE. [Concomitant]
     Active Substance: FLUOROMETHOLONE
     Route: 047
  8. MERCAZOLE [Concomitant]
     Active Substance: CARBIMAZOLE
     Dosage: 7.5 MILLIGRAM DAILY;
     Route: 048
  9. NEXIUM [Concomitant]
     Active Substance: ESOMEPRAZOLE MAGNESIUM
     Dosage: 10 MILLIGRAM DAILY;
     Route: 048
  10. MAGNESIUM OXIDE. [Concomitant]
     Active Substance: MAGNESIUM OXIDE
     Indication: CONSTIPATION
     Dosage: 1980 MILLIGRAM DAILY;
     Route: 048
     Dates: start: 20200308, end: 20200727
  11. HYALURONATE NA [Concomitant]
     Active Substance: HYALURONATE SODIUM
     Route: 047
  12. OXALIPLATIN INTRAVENOUS INFUSION 200MG ^TEVA^ [Suspect]
     Active Substance: OXALIPLATIN
     Indication: GASTRIC CANCER
     Route: 041
     Dates: start: 20200213, end: 20200512
  13. S-1TAIHO OD [Suspect]
     Active Substance: GIMERACIL\OTERACIL\TEGAFUR
     Dosage: 100 MILLIGRAM DAILY;
     Route: 048
     Dates: start: 20200219, end: 20200615
  14. LEVOFLOXACIN. [Concomitant]
     Active Substance: LEVOFLOXACIN
     Indication: CORNEAL EROSION
  15. GLUCOSE [Concomitant]
     Active Substance: DEXTROSE
     Route: 041
     Dates: start: 20200213, end: 20200512
  16. SUGLAT [Concomitant]
     Active Substance: IPRAGLIFLOZIN L-PROLINE
     Dosage: 50 MILLIGRAM DAILY;
     Route: 048

REACTIONS (2)
  - Decreased appetite [Recovering/Resolving]
  - Amaurosis fugax [Recovered/Resolved]

NARRATIVE: CASE EVENT DATE: 20200213
